FAERS Safety Report 6932988-9 (Version None)
Quarter: 2010Q3

REPORT INFORMATION
  Report Type: 
  Country: None (occurrence: None)
  Receive Date: 20100818
  Receipt Date: 20100818
  Transmission Date: 20110219
  Serious: No
  Sender: FDA-Public Use
  Company Number: None

PATIENT
  Age: 44 Year
  Sex: Male

DRUGS (3)
  1. AZITHROMYCIN [Suspect]
     Dates: start: 20090213, end: 20090217
  2. RANITIDINE [Concomitant]
  3. BENADRYL [Concomitant]

REACTIONS (4)
  - HEPATITIS ACUTE [None]
  - HEPATOCELLULAR INJURY [None]
  - NO REACTION ON PREVIOUS EXPOSURE TO DRUG [None]
  - WEIGHT DECREASED [None]
